FAERS Safety Report 7962773-0 (Version None)
Quarter: 2011Q4

REPORT INFORMATION
  Report Type: 
  Country: None (occurrence: None)
  Receive Date: 20111207
  Receipt Date: 20111130
  Transmission Date: 20120403
  Serious: Yes (Death)
  Sender: FDA-Public Use
  Company Number: JP-CELGENEUS-087-50794-11120327

PATIENT
  Sex: Male
  Weight: 67 kg

DRUGS (10)
  1. GLIMICRON [Concomitant]
     Route: 065
  2. VIDAZA [Suspect]
     Dosage: 60 MILLIGRAM/SQ. METER
     Route: 041
     Dates: start: 20110924, end: 20110928
  3. PREDNISOLONE [Concomitant]
     Route: 065
  4. DIFLUCAN [Concomitant]
     Route: 065
     Dates: start: 20110924
  5. SULFAMETHOXAZOLE AND TRIMETHOPRIM [Concomitant]
     Route: 065
     Dates: start: 20110924
  6. LASIX [Concomitant]
     Route: 065
     Dates: start: 20110909
  7. PURSENNID [Concomitant]
     Route: 065
  8. PROTECADIN [Concomitant]
     Route: 065
  9. ZOLPIDEM [Concomitant]
     Route: 065
  10. ALLOPURINOL [Concomitant]
     Route: 065
     Dates: start: 20110924

REACTIONS (1)
  - SEPSIS [None]
